FAERS Safety Report 9118598 (Version 1)
Quarter: 2013Q1

REPORT INFORMATION
  Report Type: Spontaneous
  Country: US (occurrence: US)
  Receive Date: 20130219
  Receipt Date: 20130219
  Transmission Date: 20140127
  Serious: No
  Sender: FDA-Public Use
  Company Number: US-BRISTOL-MYERS SQUIBB COMPANY-17170457

PATIENT
  Age: 53 Year
  Sex: Female

DRUGS (2)
  1. ORENCIA [Suspect]
     Dosage: LAST INF: 13NOV12
     Route: 042
  2. PREDNISONE [Concomitant]

REACTIONS (8)
  - Local swelling [Unknown]
  - Hypoaesthesia [Unknown]
  - Paraesthesia [Unknown]
  - Arthralgia [Recovering/Resolving]
  - Feeling cold [Unknown]
  - Rheumatoid arthritis [Recovering/Resolving]
  - Skin disorder [Unknown]
  - Feeling of body temperature change [Unknown]
